FAERS Safety Report 20584223 (Version 1)
Quarter: 2022Q1

REPORT INFORMATION
  Report Type: Spontaneous
  Country: US (occurrence: None)
  Receive Date: 20220311
  Receipt Date: 20220311
  Transmission Date: 20220423
  Serious: No
  Sender: FDA-Public Use
  Company Number: None

PATIENT
  Age: 52 Year
  Sex: Male
  Weight: 146 kg

DRUGS (1)
  1. METFORMIN HYDROCHLORIDE [Suspect]
     Active Substance: METFORMIN HYDROCHLORIDE
     Indication: Diabetes mellitus
     Dates: start: 20120516, end: 20210401

REACTIONS (4)
  - Feeling abnormal [None]
  - Lactic acidosis [None]
  - Encephalopathy [None]
  - Mental status changes [None]

NARRATIVE: CASE EVENT DATE: 20210401
